FAERS Safety Report 6426539-5 (Version None)
Quarter: 2009Q4

REPORT INFORMATION
  Report Type: 
  Country: None (occurrence: None)
  Receive Date: 20091104
  Receipt Date: 20091029
  Transmission Date: 20100525
  Serious: Yes (Hospitalization, Other)
  Sender: FDA-Public Use
  Company Number: US-BAYER-200936285NA

PATIENT
  Age: 24 Year
  Sex: Female

DRUGS (1)
  1. MIRENA [Suspect]
     Indication: CONTRACEPTION
     Dosage: CONTINUOUS
     Route: 015

REACTIONS (4)
  - ABDOMINAL PAIN LOWER [None]
  - DEVICE BREAKAGE [None]
  - DEVICE DISLOCATION [None]
  - VAGINAL HAEMORRHAGE [None]
